FAERS Safety Report 20017087 (Version 1)
Quarter: 2021Q4

REPORT INFORMATION
  Report Type: Spontaneous
  Country: ES (occurrence: ES)
  Receive Date: 20211030
  Receipt Date: 20211030
  Transmission Date: 20220303
  Serious: Yes (Hospitalization)
  Sender: FDA-Public Use
  Company Number: ES-CELLTRION INC.-2021ES014618

PATIENT

DRUGS (2)
  1. RITUXIMAB [Suspect]
     Active Substance: RITUXIMAB
     Indication: Immunoadsorption therapy
     Dosage: SHE REQUIRED TEN IMMUNOADSORPTION SESSIONS AND RITUXIMAB BEFORE TRANSPLANTATION
     Route: 065
  2. TACROLIMUS [Suspect]
     Active Substance: TACROLIMUS
     Indication: Transplant
     Route: 065

REACTIONS (2)
  - COVID-19 [Recovering/Resolving]
  - Off label use [Unknown]
